FAERS Safety Report 16505682 (Version 1)
Quarter: 2019Q3

REPORT INFORMATION
  Report Type: Spontaneous
  Country: US (occurrence: US)
  Receive Date: 20190701
  Receipt Date: 20190701
  Transmission Date: 20191004
  Serious: No
  Sender: FDA-Public Use
  Company Number: US-SA-2019SA176942

PATIENT
  Age: 38 Year
  Sex: Female

DRUGS (15)
  1. ESOMEPRAZOL [ESOMEPRAZOLE MAGNESIUM] [Concomitant]
  2. XYZAL [Concomitant]
     Active Substance: LEVOCETIRIZINE DIHYDROCHLORIDE
  3. ALLEGRA [Concomitant]
     Active Substance: FEXOFENADINE HYDROCHLORIDE
  4. AMLODIPINE [Concomitant]
     Active Substance: AMLODIPINE BESYLATE
  5. VITAMIN D3 [Concomitant]
     Active Substance: CHOLECALCIFEROL
  6. DUPIXENT [Suspect]
     Active Substance: DUPILUMAB
     Indication: URTICARIA
     Dosage: 150 MG, QOW
     Dates: start: 20181115
  7. ALPRAZOLAM. [Concomitant]
     Active Substance: ALPRAZOLAM
  8. DOXEPIN [Concomitant]
     Active Substance: DOXEPIN
  9. PREDNISONE. [Concomitant]
     Active Substance: PREDNISONE
  10. FAMOTIDINE. [Concomitant]
     Active Substance: FAMOTIDINE
  11. PAZEO [Concomitant]
     Active Substance: OLOPATADINE HYDROCHLORIDE
  12. PNEUMOVAX 23 [Concomitant]
     Active Substance: PNEUMOCOCCAL VACCINE, POLYVALENT 23
  13. VITAMIN B12 [VITAMIN B12 NOS] [Concomitant]
     Active Substance: CYANOCOBALAMIN
  14. VITAMIN D [VITAMIN D NOS] [Concomitant]
     Active Substance: VITAMIN D NOS
     Dosage: 50000 UNK
  15. ZAFIRLUKAST. [Concomitant]
     Active Substance: ZAFIRLUKAST

REACTIONS (2)
  - Product use in unapproved indication [Unknown]
  - Diffuse cutaneous mastocytosis [Not Recovered/Not Resolved]

NARRATIVE: CASE EVENT DATE: 20181115
